FAERS Safety Report 7070307-0 (Version None)
Quarter: 2010Q4

REPORT INFORMATION
  Report Type: 
  Country: None (occurrence: None)
  Receive Date: 20101028
  Receipt Date: 20100930
  Transmission Date: 20110411
  Serious: No
  Sender: FDA-Public Use
  Company Number: US-WYE-H17950310

PATIENT
  Age: 11 Year
  Sex: Female
  Weight: 36.32 kg

DRUGS (1)
  1. ADVIL [Suspect]
     Indication: PYREXIA
     Dosage: 1/2 TABLET AS NEEDED
     Route: 048
     Dates: start: 20100801, end: 20100801

REACTIONS (1)
  - DRUG ADMINISTRATION ERROR [None]
